FAERS Safety Report 20373090 (Version 7)
Quarter: 2022Q3

REPORT INFORMATION
  Report Type: Report from Study
  Country: BR (occurrence: BR)
  Receive Date: 20220125
  Receipt Date: 20220725
  Transmission Date: 20221027
  Serious: Yes (Life-Threatening, Hospitalization, Other)
  Sender: FDA-Public Use
  Company Number: BR-ABBVIE-22K-020-4245639-00

PATIENT
  Age: 75 Year
  Sex: Female
  Weight: 58 kg

DRUGS (3)
  1. RINVOQ [Suspect]
     Active Substance: UPADACITINIB
     Indication: Rheumatoid arthritis
     Route: 048
     Dates: start: 20211227, end: 2022
  2. RINVOQ [Suspect]
     Active Substance: UPADACITINIB
     Route: 048
     Dates: start: 2022, end: 202205
  3. LEFLUNOMIDE [Concomitant]
     Active Substance: LEFLUNOMIDE
     Indication: Product used for unknown indication

REACTIONS (18)
  - Apallic syndrome [Not Recovered/Not Resolved]
  - Infarction [Recovering/Resolving]
  - Cerebrovascular accident [Recovering/Resolving]
  - Cerebral ischaemia [Recovering/Resolving]
  - Aphasia [Unknown]
  - Speech disorder [Not Recovered/Not Resolved]
  - Blood pressure fluctuation [Unknown]
  - Nervousness [Unknown]
  - Dyspnoea [Unknown]
  - Skin mass [Unknown]
  - Rheumatic disorder [Unknown]
  - Fatigue [Unknown]
  - Asthenia [Unknown]
  - Immunodeficiency [Unknown]
  - Oropharyngeal pain [Unknown]
  - Arrhythmia [Recovered/Resolved]
  - Lung disorder [Unknown]
  - Respiratory disorder [Unknown]

NARRATIVE: CASE EVENT DATE: 20220101
